FAERS Safety Report 5857734-1 (Version None)
Quarter: 2008Q3

REPORT INFORMATION
  Report Type: 
  Country: None (occurrence: None)
  Receive Date: 20080826
  Receipt Date: 20080818
  Transmission Date: 20090109
  Serious: Yes (Life-Threatening, Hospitalization, Other)
  Sender: FDA-Public Use
  Company Number: US-TEVA-176140USA

PATIENT
  Age: 73 Year
  Sex: Female

DRUGS (2)
  1. CITALOPRAM HBR TABLETS, 10 MG, 20 MG, 40 MG [Suspect]
     Indication: DEPRESSION
     Route: 048
  2. FLUCONAZOLE [Interacting]
     Route: 048

REACTIONS (2)
  - DRUG INTERACTION [None]
  - SEROTONIN SYNDROME [None]
